FAERS Safety Report 7349372-9 (Version None)
Quarter: 2011Q1

REPORT INFORMATION
  Report Type: 
  Country: None (occurrence: None)
  Receive Date: 20110314
  Receipt Date: 20110302
  Transmission Date: 20110831
  Serious: Yes (Hospitalization)
  Sender: FDA-Public Use
  Company Number: US-ASTRAZENECA-2010SE51258

PATIENT
  Age: 59 Year
  Sex: Male
  Weight: 111 kg

DRUGS (13)
  1. SPIRONOLACTONE [Concomitant]
  2. AVANDAMET [Concomitant]
  3. ONGLYZA [Suspect]
     Indication: DIABETES MELLITUS
     Route: 048
     Dates: start: 20100726
  4. ENAHEXAL [Suspect]
  5. AMLODIPINE [Suspect]
     Dosage: 10 MG, 1/2 PER DAY
  6. DOCITON [Concomitant]
  7. JANUMET [Concomitant]
     Dosage: 1 DF = 50/850 MG, DAILY
  8. ATENOLOL [Suspect]
     Route: 048
  9. GODAMED [Suspect]
  10. METFORMIN HCL [Suspect]
     Indication: DIABETES MELLITUS
     Route: 048
     Dates: start: 20070101
  11. TORASEMIDE [Suspect]
     Dosage: 20 MG, 1/2 PER DAY
  12. FUROSEMIDE [Concomitant]
  13. SIMVASTATIN [Suspect]
     Route: 048
     Dates: start: 20080101

REACTIONS (6)
  - ASCITES [None]
  - BLOOD BILIRUBIN INCREASED [None]
  - LEUKOCYTOSIS [None]
  - TRANSAMINASES INCREASED [None]
  - BLOOD ALBUMIN DECREASED [None]
  - GAMMA-GLUTAMYLTRANSFERASE INCREASED [None]
